FAERS Safety Report 17323791 (Version 1)
Quarter: 2020Q1

REPORT INFORMATION
  Report Type: Spontaneous
  Country: US (occurrence: US)
  Receive Date: 20200109
  Receipt Date: 20200109
  Transmission Date: 20200409
  Serious: Yes (Death, Hospitalization)
  Sender: FDA-Public Use
  Company Number: None

PATIENT
  Age: 77 Year
  Sex: Female
  Weight: 81.8 kg

DRUGS (1)
  1. PALBOCICLIB (PD-0332991) [Suspect]
     Active Substance: PALBOCICLIB
     Dates: end: 20191212

REACTIONS (5)
  - Thrombocytopenia [None]
  - Facial paralysis [None]
  - Confusional state [None]
  - Fall [None]
  - Cerebral infarction [None]

NARRATIVE: CASE EVENT DATE: 20191217
